FAERS Safety Report 12679199 (Version 2)
Quarter: 2016Q3

REPORT INFORMATION
  Report Type: Report from Study
  Country: BE (occurrence: BE)
  Receive Date: 20160824
  Receipt Date: 20160927
  Transmission Date: 20161109
  Serious: Yes (Death, Hospitalization, Other)
  Sender: FDA-Public Use
  Company Number: BE-AMGEN-BELNI2016110800

PATIENT
  Age: 74 Year
  Sex: Female

DRUGS (18)
  1. CLEXANE [Suspect]
     Active Substance: ENOXAPARIN SODIUM
     Dosage: 60 UNK, QD (60MG/0.6 ML, QD)
     Route: 065
     Dates: start: 20160414, end: 20160416
  2. ALLOPURINOL. [Suspect]
     Active Substance: ALLOPURINOL
     Indication: PRODUCT USED FOR UNKNOWN INDICATION
     Dosage: 300 MG, QD
     Route: 065
     Dates: start: 20160405, end: 20160416
  3. CARFILZOMIB [Suspect]
     Active Substance: CARFILZOMIB
     Dosage: 27 MG/M2, DAY 08
     Route: 042
     Dates: end: 20160414
  4. TORENTAL [Suspect]
     Active Substance: PENTOXIFYLLINE
     Indication: PRODUCT USED FOR UNKNOWN INDICATION
     Dosage: 400 MG, QD
     Route: 065
     Dates: start: 20160405, end: 20160416
  5. ZOLPIDEM [Suspect]
     Active Substance: ZOLPIDEM\ZOLPIDEM TARTRATE
     Indication: PRODUCT USED FOR UNKNOWN INDICATION
     Dosage: 10 MG, QD
     Route: 065
     Dates: start: 20160413, end: 20160416
  6. PARACETAMOL [Concomitant]
     Active Substance: ACETAMINOPHEN
     Dosage: UNK 1 G/ 100 ML
     Route: 042
     Dates: start: 20160415, end: 20160416
  7. MOVICOL [Suspect]
     Active Substance: POLYETHYLENE GLYCOL 3350\POTASSIUM CHLORIDE\SODIUM BICARBONATE\SODIUM CHLORIDE
     Indication: PRODUCT USED FOR UNKNOWN INDICATION
     Dosage: UNK UNK, QD ONE SACHET
     Route: 065
     Dates: start: 20160405, end: 20160416
  8. ZOVIRAX [Suspect]
     Active Substance: ACYCLOVIR
     Indication: PRODUCT USED FOR UNKNOWN INDICATION
     Dosage: 800 MG, TID
     Route: 065
     Dates: start: 20160405, end: 20160416
  9. CLEXANE [Suspect]
     Active Substance: ENOXAPARIN SODIUM
     Indication: PRODUCT USED FOR UNKNOWN INDICATION
     Dosage: 40 UNK, QD (40 MG/0.4 ML, QD)
     Route: 065
     Dates: start: 20160414, end: 20160416
  10. DAFALGAN [Suspect]
     Active Substance: ACETAMINOPHEN
     Indication: PRODUCT USED FOR UNKNOWN INDICATION
     Dosage: 1 G, QID
     Route: 065
     Dates: start: 20160405, end: 20160416
  11. CARFILZOMIB [Suspect]
     Active Substance: CARFILZOMIB
     Indication: PLASMA CELL MYELOMA
     Dosage: 20 MG/M2, DAY 01, 02
     Route: 042
     Dates: start: 20160407
  12. ISO-BETADINE [Concomitant]
     Active Substance: POVIDONE-IODINE
     Dosage: 200 ML, QID
     Dates: start: 20160406, end: 20160416
  13. LASIX [Concomitant]
     Active Substance: FUROSEMIDE
     Dosage: 250 UNK, UNK 250 MG/ 25 ML
     Route: 042
     Dates: start: 20160415, end: 20160416
  14. PANTOMED [Suspect]
     Active Substance: DEXPANTHENOL
     Indication: PRODUCT USED FOR UNKNOWN INDICATION
     Dosage: 40 MG, QD
     Route: 042
     Dates: start: 20160405, end: 20160416
  15. GLUCOSE 5% [Concomitant]
     Active Substance: DEXTROSE
     Dosage: 250 ML, UNK
     Route: 042
     Dates: start: 20160415, end: 20160416
  16. MIDAZOLAM [Concomitant]
     Active Substance: MIDAZOLAM\MIDAZOLAM HYDROCHLORIDE
     Dosage: 5 UNK, UNK 5 MG/5 ML
     Route: 042
     Dates: start: 20160415, end: 20160416
  17. MORPHINE HCL [Concomitant]
     Active Substance: MORPHINE HYDROCHLORIDE
     Dosage: 10 MG/L, UNK
     Route: 042
     Dates: start: 20160415, end: 20160416
  18. SCOPOLAMINE [Concomitant]
     Active Substance: SCOPOLAMINE
     Dosage: UNK 0.25 MG/ 1 ML
     Route: 042
     Dates: start: 20160416, end: 20160416

REACTIONS (1)
  - Plasma cell myeloma [Fatal]

NARRATIVE: CASE EVENT DATE: 201604
